FAERS Safety Report 16944499 (Version 1)
Quarter: 2019Q4

REPORT INFORMATION
  Report Type: Spontaneous
  Country: JP (occurrence: JP)
  Receive Date: 20191022
  Receipt Date: 20191022
  Transmission Date: 20200122
  Serious: Yes (Hospitalization, Other)
  Sender: FDA-Public Use
  Company Number: JP-SUN PHARMACEUTICAL INDUSTRIES LTD-2019RR-224484

PATIENT
  Age: 58 Year
  Sex: Male
  Weight: 78.7 kg

DRUGS (4)
  1. PREDNISOLONE. [Suspect]
     Active Substance: PREDNISOLONE
     Indication: LANGERHANS CELL SARCOMA
     Dosage: 100 MILLIGRAM/ BODY, DAYS 1-5, AS FIRST-LINE CHOP THERAPY
     Route: 065
  2. DOXORUBICIN [Suspect]
     Active Substance: DOXORUBICIN
     Indication: LANGERHANS CELL SARCOMA
     Dosage: 50 MILLIGRAM/SQ. METER, DAY 1, AS FIRST-LINE CHOP THERAPY
     Route: 065
  3. CYCLOPHOSPHAMIDE. [Suspect]
     Active Substance: CYCLOPHOSPHAMIDE
     Indication: LANGERHANS CELL SARCOMA
     Dosage: 750 MILLIGRAM/SQ. METER, DAY 1, AS FIRST-LINE CHOP THERAPY
     Route: 065
  4. VINCRISTINE [Suspect]
     Active Substance: VINCRISTINE
     Indication: LANGERHANS CELL SARCOMA
     Dosage: 1.4 MILLIGRAM/SQ. METER, DAY 1, AS FIRST-LINE CHOP THERAPY
     Route: 065

REACTIONS (3)
  - Disease progression [Unknown]
  - Pain [Unknown]
  - Dysphagia [Unknown]
